FAERS Safety Report 7646619-6 (Version None)
Quarter: 2011Q3

REPORT INFORMATION
  Report Type: 
  Country: None (occurrence: None)
  Receive Date: 20110801
  Receipt Date: 20110727
  Transmission Date: 20111222
  Serious: Yes (Hospitalization, Other)
  Sender: FDA-Public Use
  Company Number: US-AMGEN-USASP2011035620

PATIENT
  Sex: Male

DRUGS (3)
  1. IVIGLOB-EX [Concomitant]
     Dosage: UNK UNK, QWK
     Dates: start: 20021002
  2. RITUXIMAB [Concomitant]
     Dosage: UNK UNK, Q6MO
     Dates: start: 20020325
  3. NPLATE [Suspect]
     Indication: IDIOPATHIC THROMBOCYTOPENIC PURPURA
     Dosage: 10 A?G/KG, UNK
     Dates: start: 20090205, end: 20110629

REACTIONS (2)
  - HOSPITALISATION [None]
  - THERAPEUTIC RESPONSE DECREASED [None]
